FAERS Safety Report 21940403 (Version 1)
Quarter: 2023Q1

REPORT INFORMATION
  Report Type: Report from Study
  Country: US (occurrence: US)
  Receive Date: 20230201
  Receipt Date: 20230201
  Transmission Date: 20230418
  Serious: No
  Sender: FDA-Public Use
  Company Number: US-EXELIXIS-CABO-22051057

PATIENT
  Sex: Male

DRUGS (11)
  1. CABOMETYX [Suspect]
     Active Substance: CABOZANTINIB S-MALATE
     Indication: Renal cell carcinoma
     Dosage: 40 MG, QD
     Dates: start: 20220324
  2. OPDIVO [Suspect]
     Active Substance: NIVOLUMAB
     Indication: Renal cell carcinoma
     Dosage: UNK UNK, Q4WEEKS (MONTHLY)
     Route: 042
  3. ELIQUIS [Concomitant]
     Active Substance: APIXABAN
  4. FERROUS SULFATE [Concomitant]
     Active Substance: FERROUS SULFATE
  5. OXYCODONE HYDROCHLORIDE [Concomitant]
     Active Substance: OXYCODONE HYDROCHLORIDE
  6. STOOL SOFTENER (DOCUSATE) [Concomitant]
     Active Substance: DOCUSATE
  7. TYLENOL [Concomitant]
     Active Substance: ACETAMINOPHEN
  8. DIETARY SUPPLEMENT [Concomitant]
     Active Substance: DIETARY SUPPLEMENT
  9. Dr. schulze^s intestinal formula 1 [Concomitant]
  10. ARANESP [Concomitant]
     Active Substance: DARBEPOETIN ALFA
  11. VITAMINS NOS [Concomitant]
     Active Substance: VITAMINS

REACTIONS (7)
  - Toothache [Unknown]
  - Sleep disorder [Unknown]
  - Oral pain [Unknown]
  - Pain in extremity [Recovering/Resolving]
  - Fatigue [Not Recovered/Not Resolved]
  - Constipation [Recovering/Resolving]
  - COVID-19 [Unknown]
